FAERS Safety Report 18379625 (Version 1)
Quarter: 2020Q4

REPORT INFORMATION
  Report Type: Spontaneous
  Country: GB (occurrence: GB)
  Receive Date: 20201014
  Receipt Date: 20201014
  Transmission Date: 20210114
  Serious: Yes (Hospitalization)
  Sender: FDA-Public Use
  Company Number: GB-TEVA-2020-GB-1837633

PATIENT
  Age: 65 Year
  Sex: Male
  Weight: 88 kg

DRUGS (12)
  1. ESOMEPRAZOLE SODIUM. [Concomitant]
     Active Substance: ESOMEPRAZOLE SODIUM
  2. FUROSEMIDE. [Concomitant]
     Active Substance: FUROSEMIDE
  3. ATORVASTATIN [Concomitant]
     Active Substance: ATORVASTATIN
  4. NOVOMIX [Concomitant]
     Active Substance: INSULIN ASPART
  5. BISOPROLOL [Concomitant]
     Active Substance: BISOPROLOL
  6. APIXABAN [Concomitant]
     Active Substance: APIXABAN
  7. ALLOPURINOL. [Concomitant]
     Active Substance: ALLOPURINOL
  8. ACETYLSALICYLIC ACID [Concomitant]
     Active Substance: ASPIRIN
  9. FOLIC ACID. [Concomitant]
     Active Substance: FOLIC ACID
  10. CLOPIDOGREL HYDROGEN SULFATE [Suspect]
     Active Substance: CLOPIDOGREL BISULFATE
     Indication: ACUTE MYOCARDIAL INFARCTION
     Dosage: 75 MILLIGRAM DAILY; EACH MORNING
     Route: 048
     Dates: start: 20200904, end: 20200909
  11. DIGOXIN. [Concomitant]
     Active Substance: DIGOXIN
  12. CANDESARTAN. [Concomitant]
     Active Substance: CANDESARTAN

REACTIONS (6)
  - Cough [Unknown]
  - Dyspnoea [Unknown]
  - Abnormal loss of weight [Unknown]
  - Lethargy [Unknown]
  - Chest pain [Unknown]
  - Neutropenia [Recovered/Resolved]

NARRATIVE: CASE EVENT DATE: 20200904
